FAERS Safety Report 23951133 (Version 3)
Quarter: 2024Q3

REPORT INFORMATION
  Report Type: Report from Study
  Country: US (occurrence: US)
  Receive Date: 20240607
  Receipt Date: 20240717
  Transmission Date: 20241017
  Serious: Yes (Other)
  Sender: EXELIXIS
  Company Number: US-EXELIXIS-CABO-24073611

PATIENT
  Age: 83 Year
  Sex: Male

DRUGS (8)
  1. CABOMETYX [Suspect]
     Active Substance: CABOZANTINIB S-MALATE
     Indication: Renal cancer
     Dosage: 40 MG, QD
     Route: 048
     Dates: start: 20240126, end: 202405
  2. CABOMETYX [Suspect]
     Active Substance: CABOZANTINIB S-MALATE
     Indication: Metastasis
     Dosage: 40 MG, QOD
     Route: 048
     Dates: start: 20240531
  3. ALBUTEROL SULFATE [Concomitant]
     Active Substance: ALBUTEROL SULFATE
  4. ASPIRIN [Concomitant]
     Active Substance: ASPIRIN
  5. MINERALS\VITAMINS [Concomitant]
     Active Substance: MINERALS\VITAMINS
  6. LOVASTATIN [Concomitant]
     Active Substance: LOVASTATIN
  7. MINERALS\VITAMINS [Concomitant]
     Active Substance: MINERALS\VITAMINS
  8. LOMOTIL [Concomitant]
     Active Substance: ATROPINE SULFATE\DIPHENOXYLATE HYDROCHLORIDE
     Dosage: UNK

REACTIONS (30)
  - Hypothyroidism [Recovered/Resolved]
  - Prostatomegaly [Recovered/Resolved]
  - Gait disturbance [Recovered/Resolved]
  - Lung disorder [Recovered/Resolved]
  - Urinary tract infection [Recovered/Resolved]
  - Hypersomnia [Unknown]
  - Oral disorder [Recovered/Resolved]
  - Platelet count decreased [Not Recovered/Not Resolved]
  - Taste disorder [Recovered/Resolved]
  - Lethargy [Recovered/Resolved]
  - Diarrhoea [Not Recovered/Not Resolved]
  - Asthenia [Recovered/Resolved]
  - Nausea [Recovered/Resolved]
  - Weight decreased [Recovered/Resolved]
  - Headache [Unknown]
  - Decreased appetite [Recovered/Resolved]
  - Fatigue [Recovered/Resolved]
  - Dyspnoea [Recovered/Resolved]
  - Balance disorder [Not Recovered/Not Resolved]
  - Impaired driving ability [Not Recovered/Not Resolved]
  - Atrioventricular block [Not Recovered/Not Resolved]
  - Lymphadenopathy [Unknown]
  - Tongue disorder [Unknown]
  - Tooth disorder [Unknown]
  - Visual impairment [Recovered/Resolved]
  - Tinnitus [Unknown]
  - Depressed mood [Unknown]
  - White blood cell count decreased [Not Recovered/Not Resolved]
  - Inappropriate schedule of product administration [Unknown]
  - Product prescribing issue [Unknown]

NARRATIVE: CASE EVENT DATE: 20240531
